FAERS Safety Report 16014788 (Version 1)
Quarter: 2019Q1

REPORT INFORMATION
  Report Type: Spontaneous
  Country: FR (occurrence: FR)
  Receive Date: 20190227
  Receipt Date: 20190227
  Transmission Date: 20190418
  Serious: Yes (Hospitalization)
  Sender: FDA-Public Use
  Company Number: PHHY2019FR044218

PATIENT
  Age: 46 Year
  Sex: Female

DRUGS (1)
  1. ACLASTA [Suspect]
     Active Substance: ZOLEDRONIC ACID
     Indication: OSTEOPOROSIS
     Dosage: 5 MG, UNK
     Route: 042
     Dates: start: 20190208

REACTIONS (8)
  - Nausea [Not Recovered/Not Resolved]
  - Migraine [Recovering/Resolving]
  - Migraine [Not Recovered/Not Resolved]
  - Chest pain [Recovered/Resolved]
  - Migraine [Recovering/Resolving]
  - Musculoskeletal chest pain [Recovered/Resolved]
  - Vomiting [Recovered/Resolved]
  - Arthralgia [Recovered/Resolved]

NARRATIVE: CASE EVENT DATE: 20190208
